FAERS Safety Report 6180397-5 (Version None)
Quarter: 2009Q2

REPORT INFORMATION
  Report Type: 
  Country: None (occurrence: None)
  Receive Date: 20090506
  Receipt Date: 20090428
  Transmission Date: 20091009
  Serious: Yes (Hospitalization, Other)
  Sender: FDA-Public Use
  Company Number: JP-PFIZER INC-2007074143

PATIENT

DRUGS (9)
  1. VFEND [Suspect]
     Indication: FUNGAL INFECTION
  2. L-ASPARAGINASE [Suspect]
     Indication: ACUTE LYMPHOCYTIC LEUKAEMIA
  3. ONCOVIN [Concomitant]
  4. PREDONINE [Concomitant]
  5. ADRIACIN [Concomitant]
  6. FLUCONAZOLE [Concomitant]
  7. MICAFUNGIN [Concomitant]
     Route: 042
  8. AMPHOTERICIN B [Concomitant]
     Route: 042
  9. PIRARUBICIN HYDROCHLORIDE [Concomitant]

REACTIONS (9)
  - DRUG LEVEL INCREASED [None]
  - HALLUCINATION [None]
  - HALLUCINATION, AUDITORY [None]
  - HEADACHE [None]
  - HEPATIC FUNCTION ABNORMAL [None]
  - HYPERLIPIDAEMIA [None]
  - INAPPROPRIATE ANTIDIURETIC HORMONE SECRETION [None]
  - RESTLESSNESS [None]
  - SOMNOLENCE [None]
